FAERS Safety Report 7216922-2 (Version None)
Quarter: 2010Q4

REPORT INFORMATION
  Report Type: 
  Country: None (occurrence: None)
  Receive Date: 20101229
  Receipt Date: 20101222
  Transmission Date: 20110411
  Serious: Yes (Life-Threatening)
  Sender: FDA-Public Use
  Company Number: 2010134242

PATIENT
  Age: 90 Year
  Sex: Female

DRUGS (10)
  1. FRAGMIN [Suspect]
     Indication: PERIPHERAL ARTERIAL OCCLUSIVE DISEASE
     Dosage: 15 IU DAILY, SUBCUTANEOUS
     Route: 058
     Dates: start: 20100920, end: 20100922
  2. EUTIROX (LEVOTHYROXINE) [Concomitant]
  3. PAROXETINE MESILATE (PAROXETINE MESILATE) [Concomitant]
  4. BLOPRESS (CANDESARTAN CILEXETIL) [Concomitant]
  5. MODURETIC ^MSD^ (AMILORIDE HYDROCHLORIDE, HYDROCHLOROTHIAZIDE) [Concomitant]
  6. TACHIDOL (CODEINE PHOSPHATE, PARACETAMOL) [Concomitant]
  7. CIPROFLOXACIN [Concomitant]
  8. VANCOMYCIN [Concomitant]
  9. TICLOPIDINE HYDROCHLORIDE [Concomitant]
  10. PANTOPRAZOLE [Concomitant]

REACTIONS (2)
  - ANAEMIA [None]
  - MUSCLE HAEMORRHAGE [None]
